FAERS Safety Report 8410258-X (Version None)
Quarter: 2012Q2

REPORT INFORMATION
  Report Type: 
  Country: None (occurrence: None)
  Receive Date: 20120605
  Receipt Date: 20120530
  Transmission Date: 20120825
  Serious: Yes (Life-Threatening, Hospitalization, Other)
  Sender: FDA-Public Use
  Company Number: PHHY2012FR019776

PATIENT
  Sex: Male
  Weight: 83 kg

DRUGS (11)
  1. METFORMIN HYDROCHLORIDE [Concomitant]
     Indication: DIABETES MELLITUS
     Dosage: 1 DF, QD
     Dates: end: 20120401
  2. ONBREZ [Suspect]
     Indication: CHRONIC OBSTRUCTIVE PULMONARY DISEASE
     Dosage: 150 UG, UNK
     Dates: start: 20111116, end: 20111126
  3. DIURETICS [Concomitant]
  4. METFORMIN HCL [Concomitant]
     Indication: DIABETES MELLITUS
     Dosage: 1 DF, QD
  5. ISOPTIN [Concomitant]
     Indication: HYPERTENSION
  6. REPAGLINIDE [Concomitant]
     Dosage: 2 DF, QD
  7. IRBESARTAN + HYDROCHLOROTHIAZIDE [Concomitant]
     Indication: HYPERTENSION
     Dosage: 1 DF, QD
     Dates: end: 20120101
  8. ZOPICLONE [Concomitant]
     Indication: SLEEP DISORDER
     Dosage: 1 DF, QD
     Route: 048
  9. SARTAN [Concomitant]
  10. ASPIRIN [Concomitant]
     Dosage: 160 MG, QD
  11. ISOPTIN [Concomitant]
     Indication: CARDIAC DISORDER
     Dosage: 1 DF, QD
     Dates: end: 20120401

REACTIONS (20)
  - CARDIAC FAILURE [None]
  - ASCITES [None]
  - RENAL ARTERY THROMBOSIS [None]
  - AORTIC VALVE INCOMPETENCE [None]
  - ATRIOVENTRICULAR BLOCK FIRST DEGREE [None]
  - CHEST DISCOMFORT [None]
  - MITRAL VALVE INCOMPETENCE [None]
  - DYSPNOEA [None]
  - ATRIOVENTRICULAR BLOCK [None]
  - MYOCARDIAL ISCHAEMIA [None]
  - RENAL ARTERY STENOSIS [None]
  - EJECTION FRACTION DECREASED [None]
  - N-TERMINAL PROHORMONE BRAIN NATRIURETIC PEPTIDE INCREASED [None]
  - ASTHENIA [None]
  - RENAL INFARCT [None]
  - OEDEMA [None]
  - FATIGUE [None]
  - ORTHOPNOEA [None]
  - LEFT ATRIAL DILATATION [None]
  - BUNDLE BRANCH BLOCK LEFT [None]
